FAERS Safety Report 25357281 (Version 1)
Quarter: 2025Q2

REPORT INFORMATION
  Report Type: Spontaneous
  Country: CN (occurrence: CN)
  Receive Date: 20250526
  Receipt Date: 20250526
  Transmission Date: 20250717
  Serious: Yes (Hospitalization, Other)
  Sender: BAXTER
  Company Number: None

PATIENT
  Age: 4 Year
  Sex: Male
  Weight: 19 kg

DRUGS (5)
  1. CYCLOPHOSPHAMIDE [Suspect]
     Active Substance: CYCLOPHOSPHAMIDE
     Indication: Acute lymphocytic leukaemia
     Dosage: 0.72 G, QD
     Route: 041
     Dates: start: 20250314, end: 20250314
  2. SODIUM CHLORIDE [Suspect]
     Active Substance: SODIUM CHLORIDE
     Dosage: 250 ML, BID, Q12H (0.9% SODIUM CHLORIDE INJECTION + CYTARABINE FOR INJECTION 0.72G)
     Route: 041
     Dates: start: 20250314, end: 20250317
  3. SODIUM CHLORIDE [Suspect]
     Active Substance: SODIUM CHLORIDE
     Dosage: 250 ML, QD, ONCE (0.9% SODIUM CHLORIDE INJECTION 250ML+ CYCLOPHOSPHAMIDE FOR INJECTION 0.72G)
     Route: 041
     Dates: start: 20250314, end: 20250314
  4. MERCAPTOPURINE [Suspect]
     Active Substance: MERCAPTOPURINE
     Indication: Acute lymphocytic leukaemia
     Dosage: 36.000000 MG, QD, QN
     Route: 048
     Dates: start: 20250314, end: 20250317
  5. CYTARABINE [Suspect]
     Active Substance: CYTARABINE
     Indication: Acute lymphocytic leukaemia
     Dosage: 0.72 G, BID, Q12H
     Route: 041
     Dates: start: 20250314, end: 20250317

REACTIONS (1)
  - Myelosuppression [Recovering/Resolving]

NARRATIVE: CASE EVENT DATE: 20250319
